FAERS Safety Report 4529439-0 (Version None)
Quarter: 2004Q4

REPORT INFORMATION
  Report Type: 
  Country: None (occurrence: None)
  Receive Date: 20041214
  Receipt Date: 20041129
  Transmission Date: 20050328
  Serious: Yes (Life-Threatening, Hospitalization)
  Sender: FDA-Public Use
  Company Number: A0536093A

PATIENT
  Age: 51 Year
  Sex: Male

DRUGS (1)
  1. NICORETTE [Suspect]
     Indication: SMOKING CESSATION THERAPY
     Dosage: 4 MG/TRANSBUCCAL
     Dates: start: 19800101

REACTIONS (7)
  - CARDIAC ARREST [None]
  - CARDIAC FLUTTER [None]
  - CORONARY ARTERY OCCLUSION [None]
  - HYPOAESTHESIA ORAL [None]
  - MYOCARDIAL INFARCTION [None]
  - TRANSIENT ISCHAEMIC ATTACK [None]
  - VENTRICULAR TACHYCARDIA [None]
